FAERS Safety Report 5056032-6 (Version None)
Quarter: 2006Q3

REPORT INFORMATION
  Report Type: 
  Country: None (occurrence: None)
  Receive Date: 20060717
  Receipt Date: 20060717
  Transmission Date: 20061208
  Serious: Yes (Hospitalization)
  Sender: FDA-Public Use
  Company Number: None

PATIENT
  Age: 34 Year
  Sex: Male
  Weight: 111.1 kg

DRUGS (8)
  1. ENBREL [Suspect]
     Indication: PSORIATIC ARTHROPATHY
     Dosage: 1ML   EVERY WEEK   SQ
     Route: 058
  2. ACETAMINOPHEN [Concomitant]
  3. LOMOTIL [Concomitant]
  4. NEXIUM [Concomitant]
  5. SULFASALAZINE [Concomitant]
  6. FLAGYL [Concomitant]
  7. LEVAQUIN [Concomitant]
  8. NITOZOXANIDE [Concomitant]

REACTIONS (1)
  - GASTROENTERITIS CRYPTOSPORIDIAL [None]
